FAERS Safety Report 25106651 (Version 1)
Quarter: 2025Q1

REPORT INFORMATION
  Report Type: Spontaneous
  Country: RU (occurrence: RU)
  Receive Date: 20250321
  Receipt Date: 20250321
  Transmission Date: 20250408
  Serious: Yes (Hospitalization, Other)
  Sender: VIIV
  Company Number: RU-VIIV HEALTHCARE-RU2025EME032860

PATIENT

DRUGS (3)
  1. TIVICAY [Suspect]
     Active Substance: DOLUTEGRAVIR SODIUM
     Indication: HIV infection
  2. TENOFOVIR [Concomitant]
     Active Substance: TENOFOVIR
     Indication: Product used for unknown indication
  3. LAMIVUDINE [Concomitant]
     Active Substance: LAMIVUDINE
     Indication: Product used for unknown indication

REACTIONS (13)
  - Poisoning [Unknown]
  - Pancreatitis [Unknown]
  - Dizziness [Unknown]
  - Headache [Unknown]
  - Nausea [Unknown]
  - Blood glucose increased [Unknown]
  - Chest discomfort [Unknown]
  - Pain [Unknown]
  - Weight increased [Unknown]
  - Increased appetite [Unknown]
  - Feeling abnormal [Unknown]
  - Limb discomfort [Unknown]
  - Lethargy [Unknown]
